FAERS Safety Report 22174798 (Version 2)
Quarter: 2023Q2

REPORT INFORMATION
  Report Type: Spontaneous
  Country: US (occurrence: US)
  Receive Date: 20230405
  Receipt Date: 20230529
  Transmission Date: 20230722
  Serious: No
  Sender: FDA-Public Use
  Company Number: US-BRISTOL-MYERS SQUIBB COMPANY-2022-151758

PATIENT
  Age: 79 Year
  Sex: Female

DRUGS (1)
  1. REVLIMID [Suspect]
     Active Substance: LENALIDOMIDE
     Indication: Hypothyroidism
     Dosage: TAKE 1 CAPSULE BY ?MOUTH EVERY DAY ?FOR 21 DAYS ?FOLLOWED BY 7 ?DAYS OFF
     Route: 048
     Dates: start: 20221208

REACTIONS (6)
  - Tooth disorder [Unknown]
  - Off label use [Unknown]
  - Dizziness [Recovering/Resolving]
  - Fall [Recovering/Resolving]
  - Haematoma [Recovering/Resolving]
  - Malaise [Recovering/Resolving]
